FAERS Safety Report 4498529-3 (Version None)
Quarter: 2004Q4

REPORT INFORMATION
  Report Type: 
  Country: None (occurrence: None)
  Receive Date: 20041111
  Receipt Date: 20041104
  Transmission Date: 20050328
  Serious: Yes (Life-Threatening)
  Sender: FDA-Public Use
  Company Number: CA-JNJFOC-20041101540

PATIENT
  Age: 54 Year
  Sex: Female

DRUGS (8)
  1. REMICADE [Suspect]
     Indication: RHEUMATOID ARTHRITIS
     Dosage: 27TH INFUSION
     Route: 042
  2. METHOTREXATE [Concomitant]
     Route: 058
  3. AMITRYPTLINE [Concomitant]
     Dosage: 25-50MG
     Route: 049
  4. FOLIC ACID [Concomitant]
     Route: 049
  5. CELEBREX [Concomitant]
  6. CALCIUM CARBONATE [Concomitant]
  7. B 12 [Concomitant]
  8. B6 [Concomitant]

REACTIONS (2)
  - CEREBROVASCULAR ACCIDENT [None]
  - INTRACRANIAL ANEURYSM [None]
